FAERS Safety Report 12907902 (Version 1)
Quarter: 2016Q4

REPORT INFORMATION
  Report Type: Report from Study
  Country: None (occurrence: DE)
  Receive Date: 20161103
  Receipt Date: 20161103
  Transmission Date: 20170207
  Serious: Yes (Life-Threatening, Hospitalization)
  Sender: FDA-Public Use
  Company Number: DE-ABBVIE-16K-062-1769442-00

PATIENT
  Sex: Male

DRUGS (3)
  1. HUMIRA [Suspect]
     Active Substance: ADALIMUMAB
     Route: 058
     Dates: start: 20160930
  2. HUMIRA [Suspect]
     Active Substance: ADALIMUMAB
     Route: 058
     Dates: start: 20160722, end: 20160909
  3. HUMIRA [Suspect]
     Active Substance: ADALIMUMAB
     Indication: HIDRADENITIS
     Route: 058
     Dates: start: 20160527, end: 201607

REACTIONS (5)
  - Inflammation [Recovering/Resolving]
  - Anal abscess [Recovering/Resolving]
  - Abscess rupture [Recovering/Resolving]
  - Abscess [Recovering/Resolving]
  - Scrotal abscess [Recovering/Resolving]

NARRATIVE: CASE EVENT DATE: 2016
